FAERS Safety Report 15418061 (Version 6)
Quarter: 2020Q2

REPORT INFORMATION
  Report Type: Report from Study
  Country: US (occurrence: US)
  Receive Date: 20180924
  Receipt Date: 20200408
  Transmission Date: 20200713
  Serious: No
  Sender: FDA-Public Use
  Company Number: US-EISAI MEDICAL RESEARCH-EC-2018-044254

PATIENT
  Age: 54 Year
  Sex: Female
  Weight: 95 kg

DRUGS (35)
  1. LENVATINIB [Suspect]
     Active Substance: LENVATINIB
     Route: 048
     Dates: start: 20180905, end: 20180905
  2. LENVATINIB [Suspect]
     Active Substance: LENVATINIB
     Dosage: BLINDED DOSE
     Route: 048
     Dates: start: 20190407, end: 20190420
  3. LENVATINIB [Suspect]
     Active Substance: LENVATINIB
     Dosage: BLINDED DOSE
     Route: 048
     Dates: start: 20190422, end: 20190429
  4. LENVATINIB [Suspect]
     Active Substance: LENVATINIB
     Dosage: BLINDED DOSE
     Route: 048
     Dates: start: 20190520, end: 20190729
  5. MULTIVITAMIN [Concomitant]
     Active Substance: VITAMINS
  6. LENVATINIB [Suspect]
     Active Substance: LENVATINIB
     Dosage: BLINDED DOSE
     Route: 048
     Dates: start: 20181006, end: 20181009
  7. LENVATINIB [Suspect]
     Active Substance: LENVATINIB
     Dosage: BLINDED DOSE
     Route: 048
     Dates: start: 20190516, end: 20190516
  8. LENVATINIB [Suspect]
     Active Substance: LENVATINIB
     Dosage: BLINDED DOSE
     Route: 048
     Dates: start: 20180922, end: 20181004
  9. LENVATINIB [Suspect]
     Active Substance: LENVATINIB
     Dosage: BLINDED DOSE
     Route: 048
     Dates: start: 20181130, end: 20190127
  10. LENVATINIB [Suspect]
     Active Substance: LENVATINIB
     Dosage: BLINDED DOSE
     Route: 048
     Dates: start: 20190827, end: 20190907
  11. LENVATINIB [Suspect]
     Active Substance: LENVATINIB
     Dosage: BLINDED DOSE- DOSE REDUCED (DOSE UNKNOWN)
     Route: 048
     Dates: start: 20180823, end: 20180823
  12. LENVATINIB [Suspect]
     Active Substance: LENVATINIB
     Dosage: BLINDED DOSE
     Route: 048
     Dates: start: 20181011, end: 20181110
  13. LENVATINIB [Suspect]
     Active Substance: LENVATINIB
     Dosage: BLINDED DOSE
     Route: 048
     Dates: start: 20190314, end: 20190405
  14. LENVATINIB [Suspect]
     Active Substance: LENVATINIB
     Dosage: BLINDED DOSE
     Route: 048
     Dates: start: 20190501, end: 20190514
  15. METFORMIN [Concomitant]
     Active Substance: METFORMIN HYDROCHLORIDE
  16. SIMETHICONE (DIMETHICONE) [Concomitant]
     Active Substance: DIMETHICONE
  17. LENVATINIB [Suspect]
     Active Substance: LENVATINIB
     Indication: PAPILLARY THYROID CANCER
     Dosage: BLINDED DOSE
     Route: 048
     Dates: start: 20180814, end: 20180816
  18. LENVATINIB [Suspect]
     Active Substance: LENVATINIB
     Dosage: BLINDED DOSE
     Route: 048
     Dates: start: 20180908, end: 20180908
  19. LENVATINIB [Suspect]
     Active Substance: LENVATINIB
     Dosage: BLINDED DOSE
     Route: 048
     Dates: start: 20191104, end: 20200222
  20. AMLODIPINE [Concomitant]
     Active Substance: AMLODIPINE BESYLATE
  21. LENVATINIB [Suspect]
     Active Substance: LENVATINIB
     Dosage: BLINDED DOSE
     Route: 048
     Dates: start: 20190204, end: 20190312
  22. LENVATINIB [Suspect]
     Active Substance: LENVATINIB
     Dosage: BLINDED DOSE
     Route: 048
     Dates: start: 20190518, end: 20190518
  23. FLUTICASONE PROPIONATE. [Concomitant]
     Active Substance: FLUTICASONE PROPIONATE
  24. LISINOPRIL. [Concomitant]
     Active Substance: LISINOPRIL
  25. IBUPROFEN. [Concomitant]
     Active Substance: IBUPROFEN
  26. LENVATINIB [Suspect]
     Active Substance: LENVATINIB
     Dosage: BLINDED DOSE
     Route: 048
     Dates: start: 20190812, end: 20190813
  27. LENVATINIB [Suspect]
     Active Substance: LENVATINIB
     Dosage: BLINDED DOSE
     Route: 048
     Dates: start: 20190909, end: 20190930
  28. DIAZEPAM. [Concomitant]
     Active Substance: DIAZEPAM
  29. LENVATINIB [Suspect]
     Active Substance: LENVATINIB
     Dosage: BLINDED DOSE
     Route: 048
     Dates: start: 20180825, end: 20180902
  30. LENVATINIB [Suspect]
     Active Substance: LENVATINIB
     Dosage: BLINDED DOSE
     Route: 048
     Dates: start: 20180910, end: 20180920
  31. LENVATINIB [Suspect]
     Active Substance: LENVATINIB
     Dosage: BLINDED DOSE
     Route: 048
     Dates: start: 20181112, end: 20181128
  32. ESTRADIOL. [Concomitant]
     Active Substance: ESTRADIOL
  33. HYDROCHLOROTHIAZIDE. [Concomitant]
     Active Substance: HYDROCHLOROTHIAZIDE
  34. LEVOTHYROXINE. [Concomitant]
     Active Substance: LEVOTHYROXINE
  35. OMEPRAZOLE. [Concomitant]
     Active Substance: OMEPRAZOLE

REACTIONS (1)
  - Non-cardiac chest pain [Recovered/Resolved]

NARRATIVE: CASE EVENT DATE: 20180816
